FAERS Safety Report 5873157-3 (Version None)
Quarter: 2008Q3

REPORT INFORMATION
  Report Type: 
  Country: None (occurrence: None)
  Receive Date: 20080908
  Receipt Date: 20070808
  Transmission Date: 20090109
  Serious: No
  Sender: FDA-Public Use
  Company Number: US-BAYER-200831014NA

PATIENT

DRUGS (1)
  1. AVELOX [Suspect]
     Indication: BRONCHITIS
     Route: 065
     Dates: end: 20070701

REACTIONS (4)
  - HYPOAESTHESIA [None]
  - PAIN IN EXTREMITY [None]
  - PARAESTHESIA [None]
  - TENDON PAIN [None]
